FAERS Safety Report 19409103 (Version 1)
Quarter: 2021Q2

REPORT INFORMATION
  Report Type: Spontaneous
  Country: US (occurrence: US)
  Receive Date: 20210613
  Receipt Date: 20210613
  Transmission Date: 20210717
  Serious: Yes (Other)
  Sender: FDA-Public Use
  Company Number: US-AUROBINDO-AUR-APL-2021-023825

PATIENT
  Age: 25 Year
  Sex: Male

DRUGS (22)
  1. VERAPAMIL [Concomitant]
     Active Substance: VERAPAMIL HYDROCHLORIDE
     Indication: PRODUCT USED FOR UNKNOWN INDICATION
     Dosage: 240 MILLIGRAM, DAILY
     Route: 065
  2. ASPIRINE [Suspect]
     Active Substance: ASPIRIN
     Indication: PRODUCT USED FOR UNKNOWN INDICATION
     Dosage: 325 MILLIGRAM
     Route: 065
  3. PREDNISONE. [Concomitant]
     Active Substance: PREDNISONE
     Indication: PRODUCT USED FOR UNKNOWN INDICATION
     Dosage: UNK
     Route: 065
  4. FLUTICASONE. [Concomitant]
     Active Substance: FLUTICASONE
     Indication: PRODUCT USED FOR UNKNOWN INDICATION
     Dosage: UNK (1 SPRAY IN EACH NOSTRIL TWICE DAILY)
     Route: 065
  5. ASPIRINE [Suspect]
     Active Substance: ASPIRIN
     Dosage: 60 MILLIGRAM, DAILY (OVER THE WEEKEND)
     Route: 048
  6. ASPIRINE [Suspect]
     Active Substance: ASPIRIN
     Dosage: 650 MILLIGRAM, TWO TIMES A DAY
     Route: 048
  7. ASPIRINE [Suspect]
     Active Substance: ASPIRIN
     Dosage: 100 MILLIGRAM
     Route: 048
  8. BUDESONIDE. [Concomitant]
     Active Substance: BUDESONIDE
     Indication: PRODUCT USED FOR UNKNOWN INDICATION
     Dosage: UNK (2 INHALATIONS TWICE DAILY)
     Route: 065
  9. ASPIRINE [Suspect]
     Active Substance: ASPIRIN
     Dosage: 325 MILLIGRAM
     Route: 048
  10. MONTELUKAST [Concomitant]
     Active Substance: MONTELUKAST SODIUM
     Indication: PRODUCT USED FOR UNKNOWN INDICATION
     Dosage: 10 MILLIGRAM, DAILY
     Route: 065
  11. SALMETEROL [Concomitant]
     Active Substance: SALMETEROL
     Indication: PRODUCT USED FOR UNKNOWN INDICATION
     Dosage: UNK (1 PUFF TWICE DAILY)
     Route: 065
  12. TOPIRAMATE. [Concomitant]
     Active Substance: TOPIRAMATE
     Indication: PRODUCT USED FOR UNKNOWN INDICATION
     Dosage: 50 MILLIGRAM, TWO TIMES A DAY
     Route: 065
  13. RIZATRIPTAN. [Concomitant]
     Active Substance: RIZATRIPTAN
     Indication: MIGRAINE
     Dosage: 10 MILLIGRAM (AS NEEDED)
     Route: 065
  14. ASPIRINE [Suspect]
     Active Substance: ASPIRIN
     Dosage: 100 MILLIGRAM (TWO ADDITIONAL DOSES OF ASPIRIN 100MG ON MONDAY)
     Route: 048
  15. AMITRIPTYLINE [Concomitant]
     Active Substance: AMITRIPTYLINE
     Indication: PRODUCT USED FOR UNKNOWN INDICATION
     Dosage: 25 MILLIGRAM (EACH EVENING)
     Route: 065
  16. ACETAMINOPHEN. [Suspect]
     Active Substance: ACETAMINOPHEN
     Indication: PRODUCT USED FOR UNKNOWN INDICATION
     Dosage: 1000 MILLIGRAM
     Route: 065
  17. ASPIRINE [Suspect]
     Active Substance: ASPIRIN
     Dosage: 150 MILLIGRAM
     Route: 048
  18. FLUTICASONE;SALMETEROL [Concomitant]
     Active Substance: FLUTICASONE PROPIONATE\SALMETEROL XINAFOATE
     Indication: PRODUCT USED FOR UNKNOWN INDICATION
     Dosage: UNK (500/50 ?G, INHALED TWICE DAILY)
     Route: 065
  19. RANITIDINE. [Concomitant]
     Active Substance: RANITIDINE
     Indication: PRODUCT USED FOR UNKNOWN INDICATION
     Dosage: 150 MILLIGRAM, TWO TIMES A DAY
     Route: 065
  20. IBUPROFEN. [Suspect]
     Active Substance: IBUPROFEN
     Indication: PRODUCT USED FOR UNKNOWN INDICATION
     Dosage: 800 MILLIGRAM (ABOUT 3 YEARS PREVIOUSLY)
     Route: 065
  21. ASPIRINE [Suspect]
     Active Substance: ASPIRIN
     Dosage: 30 MILLIGRAM
     Route: 048
  22. ASPIRINE [Suspect]
     Active Substance: ASPIRIN
     Dosage: 45 MILLIGRAM
     Route: 048

REACTIONS (5)
  - Asthma [Recovered/Resolved]
  - Rhinorrhoea [Recovered/Resolved]
  - Wheezing [Recovered/Resolved]
  - Nasal congestion [Recovered/Resolved]
  - Dyspnoea [Recovered/Resolved]
